FAERS Safety Report 21738027 (Version 2)
Quarter: 2023Q1

REPORT INFORMATION
  Report Type: Spontaneous
  Country: US (occurrence: US)
  Receive Date: 20221216
  Receipt Date: 20230119
  Transmission Date: 20230418
  Serious: Yes (Other)
  Sender: FDA-Public Use
  Company Number: US-JNJFOC-20221214789

PATIENT
  Age: 11 Year
  Sex: Male

DRUGS (3)
  1. CHILDRENS TYLENOL COLD PLUS FLU [Suspect]
     Active Substance: ACETAMINOPHEN\CHLORPHENIRAMINE MALEATE\DEXTROMETHORPHAN HYDROBROMIDE\PHENYLEPHRINE HYDROCHLORIDE
     Indication: Headache
     Dosage: TWICE. TOOK IN THE 11 MORNING AND TOOK FOR 6 EVENING
     Route: 048
     Dates: start: 20221203, end: 20221203
  2. CHILDRENS TYLENOL COLD PLUS FLU [Suspect]
     Active Substance: ACETAMINOPHEN\CHLORPHENIRAMINE MALEATE\DEXTROMETHORPHAN HYDROBROMIDE\PHENYLEPHRINE HYDROCHLORIDE
     Indication: Cough
  3. CHILDRENS TYLENOL COLD PLUS FLU [Suspect]
     Active Substance: ACETAMINOPHEN\CHLORPHENIRAMINE MALEATE\DEXTROMETHORPHAN HYDROBROMIDE\PHENYLEPHRINE HYDROCHLORIDE
     Indication: Oropharyngeal pain

REACTIONS (3)
  - Delirium [Recovered/Resolved]
  - Inappropriate schedule of product administration [Recovered/Resolved]
  - Lethargy [Unknown]

NARRATIVE: CASE EVENT DATE: 20221203
